FAERS Safety Report 11398902 (Version 2)
Quarter: 2015Q3

REPORT INFORMATION
  Report Type: Spontaneous
  Country: CA (occurrence: CA)
  Receive Date: 20150820
  Receipt Date: 20150820
  Transmission Date: 20151125
  Serious: No
  Sender: FDA-Public Use
  Company Number: CA-JNJFOC-20150813707

PATIENT

DRUGS (1)
  1. USTEKINUMAB [Suspect]
     Active Substance: USTEKINUMAB
     Indication: PSORIASIS
     Dosage: 45 TO 90 MG AT 0 AND 4 WEEKS THEN EVERY 8 TO 12 WEEKS
     Route: 058

REACTIONS (1)
  - Infection [Unknown]
